FAERS Safety Report 13094216 (Version 3)
Quarter: 2017Q1

REPORT INFORMATION
  Report Type: Spontaneous
  Country: FR (occurrence: FR)
  Receive Date: 20170106
  Receipt Date: 20170203
  Transmission Date: 20170428
  Serious: Yes (Death)
  Sender: FDA-Public Use
  Company Number: FR-GE HEALTHCARE MEDICAL DIAGNOSTICS-VISP-PR-1701S-0002

PATIENT
  Age: 94 Year
  Sex: Female

DRUGS (17)
  1. LEVOTHYROX [Concomitant]
     Active Substance: LEVOTHYROXINE
  2. LOXEN [Concomitant]
     Active Substance: NICARDIPINE HYDROCHLORIDE
  3. ZYPREXA [Concomitant]
     Active Substance: OLANZAPINE
  4. VISIPAQUE [Suspect]
     Active Substance: IODIXANOL
     Indication: DIAGNOSTIC PROCEDURE
  5. DAFALGAN [Concomitant]
     Active Substance: ACETAMINOPHEN
  6. NORMACOL [Concomitant]
     Active Substance: KARAYA GUM
  7. VISIPAQUE [Suspect]
     Active Substance: IODIXANOL
     Indication: INAPPROPRIATE ANTIDIURETIC HORMONE SECRETION
     Dosage: DOSE NOT REPORTED
     Route: 042
     Dates: start: 20160429, end: 20160429
  8. ACEBUTOL [Concomitant]
  9. KARDEGIC [Concomitant]
     Active Substance: ASPIRIN LYSINE
  10. COLOPEG [Concomitant]
     Active Substance: POLYETHYLENE GLYCOL 3350\POTASSIUM CHLORIDE\SODIUM BICARBONATE\SODIUM CHLORIDE\SODIUM SULFATE
  11. UVEDOSE [Concomitant]
     Active Substance: CHOLECALCIFEROL
     Dates: end: 20150416
  12. MIANSERIN [Concomitant]
     Active Substance: MIANSERIN
     Dates: end: 20150327
  13. TAMSULOSIN [Concomitant]
     Active Substance: TAMSULOSIN
  14. LASILIX [Concomitant]
     Active Substance: FUROSEMIDE
     Dates: end: 20150327
  15. SERESTA [Concomitant]
     Active Substance: OXAZEPAM
  16. FORLAX [Concomitant]
     Active Substance: POLYETHYLENE GLYCOL 4000
     Dates: end: 20150327
  17. CACIT D3 [Concomitant]
     Active Substance: CALCIUM\CHOLECALCIFEROL
     Dates: start: 20150416

REACTIONS (1)
  - Dyspnoea [Fatal]

NARRATIVE: CASE EVENT DATE: 20150429
